FAERS Safety Report 14324550 (Version 3)
Quarter: 2018Q2

REPORT INFORMATION
  Report Type: Spontaneous
  Country: GR (occurrence: GR)
  Receive Date: 20171226
  Receipt Date: 20180423
  Transmission Date: 20180711
  Serious: Yes (Hospitalization, Disabling, Other)
  Sender: FDA-Public Use
  Company Number: GR-MYLANLABS-2017M1077734

PATIENT
  Age: 79 Year
  Sex: Female

DRUGS (5)
  1. CLINDAMYCIN. [Suspect]
     Active Substance: CLINDAMYCIN
     Indication: SKIN BACTERIAL INFECTION
     Dosage: 300 MG, 3X
  2. FUSIDIC ACID [Interacting]
     Active Substance: FUSIDIC ACID
     Indication: SKIN BACTERIAL INFECTION
     Dosage: 1000 MG, QD
  3. ATORVASTATIN [Suspect]
     Active Substance: ATORVASTATIN
     Indication: PRODUCT USED FOR UNKNOWN INDICATION
     Dosage: 20 MG, QD
  4. FUSIDIC ACID [Interacting]
     Active Substance: FUSIDIC ACID
     Indication: DERMATITIS
     Dosage: 250 MG, QD
  5. CLINDAMYCIN. [Suspect]
     Active Substance: CLINDAMYCIN
     Dosage: 900 MG, UNK
     Route: 065

REACTIONS (6)
  - Drug interaction [Unknown]
  - Muscular weakness [Recovered/Resolved]
  - Gait disturbance [Recovered/Resolved]
  - Rhabdomyolysis [Recovered/Resolved]
  - Myoglobinuria [Recovered/Resolved]
  - Myalgia [Recovered/Resolved]
